FAERS Safety Report 5128437-6 (Version None)
Quarter: 2006Q4

REPORT INFORMATION
  Report Type: 
  Country: None (occurrence: None)
  Receive Date: 20061004
  Receipt Date: 20060922
  Transmission Date: 20070319
  Serious: Yes (Life-Threatening, Other)
  Sender: FDA-Public Use
  Company Number: 2006BH012041

PATIENT
  Age: 58 Year
  Sex: Female

DRUGS (1)
  1. GAMMAGARD LIQUID [Suspect]
     Indication: IMMUNODEFICIENCY
     Dosage: 30 GM; EVERY 2 WK; IV
     Route: 042
     Dates: start: 20060721, end: 20060721

REACTIONS (1)
  - OBSTRUCTIVE AIRWAYS DISORDER [None]
